FAERS Safety Report 5403209-3 (Version None)
Quarter: 2007Q3

REPORT INFORMATION
  Report Type: 
  Country: None (occurrence: None)
  Receive Date: 20070801
  Receipt Date: 20070720
  Transmission Date: 20080115
  Serious: Yes (Life-Threatening)
  Sender: FDA-Public Use
  Company Number: AU-PFIZER INC-2006142320

PATIENT
  Sex: Female
  Weight: 79 kg

DRUGS (3)
  1. IDARUBICIN HCL [Suspect]
     Indication: ACUTE MYELOID LEUKAEMIA
     Route: 042
     Dates: start: 20061031, end: 20061102
  2. CYTARABINE [Suspect]
     Indication: ACUTE MYELOID LEUKAEMIA
     Route: 042
     Dates: start: 20061031, end: 20061107
  3. ETOPOSIDE [Suspect]
     Indication: ACUTE MYELOID LEUKAEMIA
     Route: 042
     Dates: start: 20061031, end: 20061106

REACTIONS (3)
  - BRAIN HYPOXIA [None]
  - CARDIAC ARREST [None]
  - COGNITIVE DISORDER [None]
